FAERS Safety Report 14984205 (Version 1)
Quarter: 2018Q2

REPORT INFORMATION
  Report Type: Report from Study
  Country: FR (occurrence: FR)
  Receive Date: 20180607
  Receipt Date: 20180607
  Transmission Date: 20180711
  Serious: Yes (Death, Other)
  Sender: FDA-Public Use
  Company Number: FR-JAZZ-2017-FR-015791

PATIENT

DRUGS (1)
  1. DEFITELIO [Suspect]
     Active Substance: DEFIBROTIDE SODIUM
     Indication: PRODUCT USED FOR UNKNOWN INDICATION

REACTIONS (6)
  - Metastases to peritoneum [Unknown]
  - Neuroblastoma recurrent [Unknown]
  - Staphylococcal infection [Unknown]
  - Rhinovirus infection [Unknown]
  - Hepatic mass [Unknown]
  - Death [Fatal]

NARRATIVE: CASE EVENT DATE: 20141205
